FAERS Safety Report 11653834 (Version 4)
Quarter: 2015Q4

REPORT INFORMATION
  Report Type: Spontaneous
  Country: US (occurrence: US)
  Receive Date: 20151022
  Receipt Date: 20151027
  Transmission Date: 20160304
  Serious: No
  Sender: FDA-Public Use
  Company Number: GXBR2014US002429

PATIENT
  Age: 20 Year
  Sex: Female
  Weight: 20 kg

DRUGS (4)
  1. AMITRIPTYLINE [Concomitant]
     Active Substance: AMITRIPTYLINE
     Indication: PAIN
     Dosage: 20 MG VIA GASTROMSTOMY TUBE, QHS
     Route: 050
  2. TRAMADOL. [Concomitant]
     Active Substance: TRAMADOL
     Indication: PAIN
     Dosage: 25 MG VIA GASTROMSTOMY TUBE, PRN
     Route: 050
  3. PIPERACILLIN AND TAZOBACTAM [Suspect]
     Active Substance: PIPERACILLIN SODIUM\TAZOBACTAM SODIUM
     Indication: INFECTION PROPHYLAXIS
     Dosage: 2.25 G, OVER 25-30 MINTUES TID
     Route: 042
     Dates: start: 20141028, end: 20141109
  4. ANTIBIOTICS [Concomitant]
     Active Substance: UNSPECIFIED INGREDIENT
     Indication: INFECTION PROPHYLAXIS
     Dosage: UNK DF, UNK
     Dates: start: 201410

REACTIONS (11)
  - Dry mouth [Recovering/Resolving]
  - Anxiety [Recovered/Resolved]
  - Lip haemorrhage [Recovering/Resolving]
  - Confusional state [Unknown]
  - Blepharospasm [Recovering/Resolving]
  - Chapped lips [Recovering/Resolving]
  - Insomnia [Recovered/Resolved]
  - Tremor [Recovering/Resolving]
  - Laceration [Recovering/Resolving]
  - Restlessness [Unknown]
  - Muscle twitching [Recovering/Resolving]

NARRATIVE: CASE EVENT DATE: 20141104
